FAERS Safety Report 6919457-7 (Version None)
Quarter: 2010Q3

REPORT INFORMATION
  Report Type: 
  Country: None (occurrence: None)
  Receive Date: 20100811
  Receipt Date: 20100805
  Transmission Date: 20110219
  Serious: Yes (Hospitalization)
  Sender: FDA-Public Use
  Company Number: B0668624A

PATIENT
  Sex: Female

DRUGS (3)
  1. DEROXAT [Suspect]
     Indication: DEPRESSION
     Dates: start: 20081001, end: 20090701
  2. ESCITALOPRAM OXALATE [Suspect]
     Indication: DEPRESSION
     Dosage: 20MG PER DAY
     Dates: start: 20090701, end: 20100312
  3. SYNTOCINON [Concomitant]
     Dates: start: 20100312, end: 20100312

REACTIONS (23)
  - APGAR SCORE ABNORMAL [None]
  - CLEFT PALATE [None]
  - COUGH [None]
  - CYANOSIS [None]
  - DEHYDRATION [None]
  - DRUG EXPOSURE DURING PREGNANCY [None]
  - EYE DISORDER [None]
  - FONTANELLE DEPRESSED [None]
  - HAEMANGIOMA [None]
  - HYPERTONIA [None]
  - HYPOTONIA [None]
  - MALAISE [None]
  - MALNUTRITION [None]
  - MUCOSAL DRYNESS [None]
  - MUSCULAR WEAKNESS [None]
  - OESOPHAGITIS [None]
  - PALATAL DISORDER [None]
  - PALLOR [None]
  - POOR SUCKING REFLEX [None]
  - REGURGITATION [None]
  - STRIDOR [None]
  - VOMITING [None]
  - WEIGHT GAIN POOR [None]
